FAERS Safety Report 8840371 (Version 1)
Quarter: 2012Q4

REPORT INFORMATION
  Report Type: 
  Country: US (occurrence: US)
  Receive Date: 20121015
  Receipt Date: 20121015
  Transmission Date: 20130627
  Serious: No
  Sender: FDA-Public Use
  Company Number: US-BAYER-2012-107795

PATIENT

DRUGS (9)
  1. ALEVE CAPLET/TABLET,MIDOL EXTENDED RELIEF CAPLET [Suspect]
     Indication: HEADACHE
  2. ALEVE CAPLET/TABLET,MIDOL EXTENDED RELIEF CAPLET [Suspect]
     Indication: TOOTHACHE
  3. ALEVE CAPLET/TABLET,MIDOL EXTENDED RELIEF CAPLET [Suspect]
     Indication: EAR PAIN
  4. ADVIL [Suspect]
     Indication: HEADACHE
  5. ADVIL [Suspect]
     Indication: TOOTHACHE
  6. ADVIL [Suspect]
     Indication: EAR PAIN
  7. IBUPROFEN [Suspect]
     Indication: HEADACHE
  8. IBUPROFEN [Suspect]
     Indication: TOOTHACHE
  9. IBUPROFEN [Suspect]
     Indication: EAR PAIN

REACTIONS (1)
  - Drug ineffective [None]
